FAERS Safety Report 6693606-0 (Version None)
Quarter: 2010Q2

REPORT INFORMATION
  Report Type: 
  Country: None (occurrence: None)
  Receive Date: 20100423
  Receipt Date: 20090106
  Transmission Date: 20101027
  Serious: Yes (Hospitalization)
  Sender: FDA-Public Use
  Company Number: BR-RANBAXY-2009R5-30428

PATIENT

DRUGS (1)
  1. AMOXACILINA SODICA [Suspect]
     Indication: DRUG USE FOR UNKNOWN INDICATION
     Dosage: 500 MG, 14 CAPSULES
     Route: 048
     Dates: start: 20100106, end: 20100106

REACTIONS (1)
  - INTENTIONAL OVERDOSE [None]
